FAERS Safety Report 5745405-1 (Version None)
Quarter: 2008Q2

REPORT INFORMATION
  Report Type: 
  Country: None (occurrence: None)
  Receive Date: 20080521
  Receipt Date: 20080512
  Transmission Date: 20081010
  Serious: Yes (Other)
  Sender: FDA-Public Use
  Company Number: GB-TEVA-171664ISR

PATIENT
  Age: 25 Year
  Sex: Female
  Weight: 58 kg

DRUGS (1)
  1. CLARITHROMYCIN [Suspect]
     Indication: BACTEROIDES INFECTION
     Route: 048
     Dates: end: 20080416

REACTIONS (2)
  - LETHARGY [None]
  - PALPITATIONS [None]
